FAERS Safety Report 18312915 (Version 1)
Quarter: 2020Q3

REPORT INFORMATION
  Report Type: Spontaneous
  Country: US (occurrence: US)
  Receive Date: 20200925
  Receipt Date: 20200925
  Transmission Date: 20201103
  Serious: No
  Sender: FDA-Public Use
  Company Number: US-SA-2020SA263245

PATIENT

DRUGS (2)
  1. RADIOACTIVE IODINE SOLUTION [Suspect]
     Active Substance: SODIUM IODIDE I-131
     Indication: THERAPEUTIC PROCEDURE
     Dosage: UNK
     Route: 065
     Dates: start: 202009
  2. THYROGEN [Suspect]
     Active Substance: THYROTROPIN ALFA
     Indication: THERAPEUTIC PROCEDURE
     Dosage: 0.9 MG, BID (DAILY X 2 DOSES)
     Route: 065
     Dates: start: 20200914, end: 20200915

REACTIONS (5)
  - Condition aggravated [Not Recovered/Not Resolved]
  - Feeling of body temperature change [Not Recovered/Not Resolved]
  - Off label use [Unknown]
  - Hyperhidrosis [Not Recovered/Not Resolved]
  - Nausea [Not Recovered/Not Resolved]

NARRATIVE: CASE EVENT DATE: 202009
